FAERS Safety Report 16530544 (Version 1)
Quarter: 2019Q3

REPORT INFORMATION
  Report Type: Spontaneous
  Country: GR (occurrence: GR)
  Receive Date: 20190704
  Receipt Date: 20190704
  Transmission Date: 20191004
  Serious: Yes (Other)
  Sender: FDA-Public Use
  Company Number: GR-SA-2019SA178758

PATIENT
  Age: 88 Year
  Sex: Female

DRUGS (1)
  1. AFLIBERCEPT [Suspect]
     Active Substance: AFLIBERCEPT
     Indication: NEOVASCULAR AGE-RELATED MACULAR DEGENERATION
     Route: 031

REACTIONS (4)
  - Haemorrhage [Recovering/Resolving]
  - Retinal haemorrhage [Recovering/Resolving]
  - Eye haemorrhage [Recovering/Resolving]
  - Visual impairment [Recovering/Resolving]
